FAERS Safety Report 12323818 (Version 1)
Quarter: 2016Q2

REPORT INFORMATION
  Report Type: Spontaneous
  Country: US (occurrence: US)
  Receive Date: 20160502
  Receipt Date: 20160502
  Transmission Date: 20160815
  Serious: Yes (Other)
  Sender: FDA-Public Use
  Company Number: US-PFIZER INC-2016230195

PATIENT
  Age: 68 Year
  Sex: Female

DRUGS (5)
  1. COLACE [Concomitant]
     Active Substance: DOCUSATE SODIUM
     Dosage: 100 MG, ALTERNATE DAY
  2. RESTASIS [Concomitant]
     Active Substance: CYCLOSPORINE
     Dosage: 2 GTT (ONE DROP, IN BOTH EYE), 2X/DAY
     Route: 047
  3. PREMARIN [Suspect]
     Active Substance: ESTROGENS, CONJUGATED
     Dosage: 0.5 DF, CYCLIC (HALF APPLICATOR, THREE TIMES A WEEK)
     Route: 067
     Dates: start: 2013
  4. HIPREX [Concomitant]
     Active Substance: METHENAMINE HIPPURATE
     Dosage: 1 G, 2X/DAY
  5. JANTOVEN [Concomitant]
     Active Substance: WARFARIN SODIUM
     Dosage: 1 MG, AS DIRECTED

REACTIONS (2)
  - Wrong technique in product usage process [Not Recovered/Not Resolved]
  - Urinary tract infection [Not Recovered/Not Resolved]
